FAERS Safety Report 6069998-2 (Version None)
Quarter: 2009Q1

REPORT INFORMATION
  Report Type: 
  Country: None (occurrence: None)
  Receive Date: 20090209
  Receipt Date: 20090106
  Transmission Date: 20090719
  Serious: Yes (Hospitalization)
  Sender: FDA-Public Use
  Company Number: GB-ASTRAZENECA-2009GB00368

PATIENT
  Age: 28332 Day
  Sex: Female
  Weight: 65 kg

DRUGS (3)
  1. FASLODEX [Suspect]
     Indication: BREAST CANCER METASTATIC
     Dosage: LOADING DOSE
     Route: 030
     Dates: start: 20081014
  2. FASLODEX [Suspect]
     Dosage: 05 INJECTIONS GIVEN
     Route: 030
     Dates: end: 20081209
  3. ARIMIDEX [Suspect]
     Indication: BREAST CANCER METASTATIC
     Dosage: TAKEN FOR 72 DAYS
     Route: 048
     Dates: start: 20081014

REACTIONS (1)
  - PULMONARY EMBOLISM [None]
